FAERS Safety Report 13985644 (Version 1)
Quarter: 2017Q3

REPORT INFORMATION
  Report Type: Report from Study
  Country: US (occurrence: US)
  Receive Date: 20170919
  Receipt Date: 20170919
  Transmission Date: 20171128
  Serious: Yes (Hospitalization)
  Sender: FDA-Public Use
  Company Number: US-TAKEDA-2017TUS018864

PATIENT
  Age: 33 Year
  Sex: Female
  Weight: 58.05 kg

DRUGS (4)
  1. DHA [Concomitant]
     Active Substance: DIETARY SUPPLEMENT
     Dosage: UNK UNK, QD
     Route: 048
     Dates: start: 20160915
  2. PRENATAL VITAMINS                  /02014401/ [Concomitant]
     Active Substance: VITAMINS
     Dosage: UNK
  3. IMURAN [Concomitant]
     Active Substance: AZATHIOPRINE
     Indication: CROHN^S DISEASE
     Dosage: 50 MG, TID
     Route: 048
     Dates: start: 20160701
  4. VEDOLIZUMAB [Suspect]
     Active Substance: VEDOLIZUMAB
     Indication: CROHN^S DISEASE
     Dosage: 300 MG, MONTHLY
     Route: 042
     Dates: start: 20160701

REACTIONS (7)
  - Off label use [Unknown]
  - Nausea [Unknown]
  - Diarrhoea [Unknown]
  - Multiple allergies [Unknown]
  - Pregnancy [Unknown]
  - Urinary tract infection [Recovered/Resolved]
  - Vomiting [Unknown]

NARRATIVE: CASE EVENT DATE: 20170605
